FAERS Safety Report 7917920-3 (Version None)
Quarter: 2011Q4

REPORT INFORMATION
  Report Type: 
  Country: None (occurrence: None)
  Receive Date: 20111116
  Receipt Date: 20111111
  Transmission Date: 20120403
  Serious: Yes (Death, Other)
  Sender: FDA-Public Use
  Company Number: PHHY2011CZ099528

PATIENT
  Age: 82 Year
  Sex: Male

DRUGS (1)
  1. IMATINIB [Suspect]
     Indication: GASTROINTESTINAL STROMAL TUMOUR

REACTIONS (2)
  - BRONCHOPNEUMONIA [None]
  - GENE MUTATION IDENTIFICATION TEST POSITIVE [None]
